FAERS Safety Report 10984809 (Version 2)
Quarter: 2015Q2

REPORT INFORMATION
  Report Type: Spontaneous
  Country: US (occurrence: US)
  Receive Date: 20150403
  Receipt Date: 20150525
  Transmission Date: 20150821
  Serious: No
  Sender: FDA-Public Use
  Company Number: US-JNJFOC-20130613336

PATIENT
  Sex: Female

DRUGS (2)
  1. IMODIUM A-D [Suspect]
     Active Substance: LOPERAMIDE HYDROCHLORIDE
     Indication: GASTROINTESTINAL DISORDER
     Dosage: HALF CAPLET
     Route: 048
  2. IMODIUM A-D [Suspect]
     Active Substance: LOPERAMIDE HYDROCHLORIDE
     Indication: ANORECTAL DISORDER
     Dosage: HALF CAPLET
     Route: 048

REACTIONS (2)
  - Product use issue [Unknown]
  - Incorrect dose administered [Unknown]
